FAERS Safety Report 12720213 (Version 23)
Quarter: 2019Q2

REPORT INFORMATION
  Report Type: Spontaneous
  Country: US (occurrence: US)
  Receive Date: 20160907
  Receipt Date: 20190516
  Transmission Date: 20190711
  Serious: Yes (Hospitalization, Other)
  Sender: FDA-Public Use
  Company Number: US-PFIZER INC-2016421164

PATIENT
  Age: 65 Year
  Sex: Female

DRUGS (7)
  1. TURMERIC [CURCUMA LONGA RHIZOME] [Concomitant]
     Active Substance: HERBALS\TURMERIC
     Dosage: 450 MG, AS NEEDED
  2. PHAZYME [SIMETICONE] [Concomitant]
     Dosage: 250 MG, AS NEEDED
  3. SULFASALAZINE. [Suspect]
     Active Substance: SULFASALAZINE
     Indication: OSTEITIS
     Dosage: 500 MG, 3X/DAY
     Route: 065
     Dates: start: 2017
  4. OMEPRAZOLE. [Suspect]
     Active Substance: OMEPRAZOLE
     Indication: GASTROINTESTINAL DISORDER
     Dosage: 20 MG, UNK
     Dates: start: 2013
  5. XELJANZ [Suspect]
     Active Substance: TOFACITINIB CITRATE
     Indication: ARTHRITIS
     Dosage: 5 MG, UNK
     Route: 048
  6. XELJANZ [Suspect]
     Active Substance: TOFACITINIB CITRATE
     Indication: RHEUMATOID ARTHRITIS
     Dosage: 5 MG, 2X/DAY
     Route: 048
     Dates: start: 20170531
  7. PREDNISONE. [Suspect]
     Active Substance: PREDNISONE
     Indication: RHEUMATOID ARTHRITIS
     Dosage: 5 MG, AS NEEDED
     Route: 048
     Dates: start: 2010

REACTIONS (23)
  - Somnolence [Recovered/Resolved]
  - Rhinitis [Not Recovered/Not Resolved]
  - Condition aggravated [Not Recovered/Not Resolved]
  - Drug ineffective [Unknown]
  - Hand deformity [Not Recovered/Not Resolved]
  - Arthritis [Not Recovered/Not Resolved]
  - Fluid retention [Not Recovered/Not Resolved]
  - Feeling abnormal [Unknown]
  - Musculoskeletal disorder [Unknown]
  - Dyskinesia [Recovered/Resolved]
  - Hypoacusis [Not Recovered/Not Resolved]
  - Pain in extremity [Not Recovered/Not Resolved]
  - Malaise [Recovered/Resolved]
  - Movement disorder [Not Recovered/Not Resolved]
  - Vasculitis [Not Recovered/Not Resolved]
  - Cryptococcosis [Recovered/Resolved]
  - Blood albumin abnormal [Recovered/Resolved]
  - Pseudomonas infection [Unknown]
  - Staphylococcal infection [Not Recovered/Not Resolved]
  - Fatigue [Recovered/Resolved]
  - Vein disorder [Unknown]
  - Pain [Unknown]
  - Gait disturbance [Not Recovered/Not Resolved]

NARRATIVE: CASE EVENT DATE: 2014
